FAERS Safety Report 6865320-X (Version None)
Quarter: 2010Q3

REPORT INFORMATION
  Report Type: 
  Country: None (occurrence: None)
  Receive Date: 20100721
  Receipt Date: 20080416
  Transmission Date: 20110219
  Serious: Yes (Hospitalization, Other)
  Sender: FDA-Public Use
  Company Number: US-PFIZER INC-2008034882

PATIENT
  Sex: Female

DRUGS (2)
  1. CHANTIX [Suspect]
     Indication: SMOKING CESSATION THERAPY
     Dosage: EVERY DAY
     Dates: start: 20080215, end: 20080311
  2. CHANTIX [Suspect]
     Indication: DYSPNOEA

REACTIONS (10)
  - ABNORMAL DREAMS [None]
  - ANGER [None]
  - BACK PAIN [None]
  - CHOLELITHIASIS [None]
  - DEHYDRATION [None]
  - DEPRESSION [None]
  - HEADACHE [None]
  - MENTAL DISORDER [None]
  - PANCREATITIS [None]
  - VOMITING [None]
